FAERS Safety Report 17010540 (Version 1)
Quarter: 2019Q4

REPORT INFORMATION
  Report Type: Spontaneous
  Country: US (occurrence: US)
  Receive Date: 20191107
  Receipt Date: 20191107
  Transmission Date: 20200122
  Serious: Yes (Other)
  Sender: FDA-Public Use
  Company Number: None

PATIENT
  Age: 65 Year
  Sex: Male
  Weight: 80.1 kg

DRUGS (6)
  1. SIMVASTATIN. [Concomitant]
     Active Substance: SIMVASTATIN
  2. SINGULAIR [Concomitant]
     Active Substance: MONTELUKAST SODIUM
  3. MULTI-VITAMINS [Concomitant]
  4. XPONEX [Concomitant]
  5. LATANOPROST OPHTHALMIC SOLUTION 0.005% 125 MCG/2.5 ML [Suspect]
     Active Substance: LATANOPROST
     Indication: GLAUCOMA
     Dosage: ?          QUANTITY:1 DROP(S);?
     Route: 061
     Dates: start: 20191022, end: 20191103
  6. ALVESCO [Concomitant]
     Active Substance: CICLESONIDE

REACTIONS (3)
  - Product quality issue [None]
  - Eye irritation [None]
  - Product substitution issue [None]

NARRATIVE: CASE EVENT DATE: 20191101
